FAERS Safety Report 18277016 (Version 4)
Quarter: 2025Q2

REPORT INFORMATION
  Report Type: Report from Study
  Country: US (occurrence: US)
  Receive Date: 20200917
  Receipt Date: 20250627
  Transmission Date: 20250717
  Serious: Yes (Other)
  Sender: TAKEDA
  Company Number: US-SHIRE-US202030244

PATIENT
  Age: 53 Year
  Sex: Female

DRUGS (3)
  1. PARATHYROID HORMONE [Suspect]
     Active Substance: PARATHYROID HORMONE
     Indication: Hypoparathyroidism
  2. PARATHYROID HORMONE [Suspect]
     Active Substance: PARATHYROID HORMONE
     Dosage: 100 MICROGRAM, QD
     Dates: start: 20181109
  3. PARATHYROID HORMONE [Suspect]
     Active Substance: PARATHYROID HORMONE

REACTIONS (7)
  - Calcium intoxication [Unknown]
  - Malaise [Unknown]
  - Bronchitis [Recovering/Resolving]
  - COVID-19 [Recovering/Resolving]
  - Needle issue [Unknown]
  - Device breakage [Unknown]
  - Vomiting [Unknown]

NARRATIVE: CASE EVENT DATE: 20200807
